FAERS Safety Report 6264326-1 (Version None)
Quarter: 2009Q3

REPORT INFORMATION
  Report Type: 
  Country: None (occurrence: None)
  Receive Date: 20090710
  Receipt Date: 20090630
  Transmission Date: 20100115
  Serious: Yes (Hospitalization)
  Sender: FDA-Public Use
  Company Number: A0794472A

PATIENT
  Age: 66 Year
  Sex: Male
  Weight: 143.6 kg

DRUGS (10)
  1. AVANDIA [Suspect]
     Dosage: 4MG TWICE PER DAY
     Dates: start: 20000601, end: 20071201
  2. METFORMIN HCL [Concomitant]
  3. MICARDIS [Concomitant]
  4. GLYBURIDE [Concomitant]
  5. PROBENECID [Concomitant]
  6. GEMFIBROZIL [Concomitant]
  7. FLUOXETINE HCL [Concomitant]
  8. ASPIRIN [Concomitant]
  9. VERAPAMIL [Concomitant]
  10. INSULIN [Concomitant]

REACTIONS (4)
  - ATRIAL FIBRILLATION [None]
  - CARDIAC FAILURE CONGESTIVE [None]
  - CARDIOMYOPATHY [None]
  - RENAL FAILURE [None]
